FAERS Safety Report 8450658 (Version 3)
Quarter: 2012Q4

REPORT INFORMATION
  Report Type: Spontaneous
  Country: JP (occurrence: None)
  Receive Date: 20120229
  Receipt Date: 20120926
  Transmission Date: 20130627
  Serious: Yes (Other)
  Sender: FDA-Public Use
  Company Number: ADR-2012-00435

PATIENT
  Age: 6 Year
  Sex: Female
  Weight: 20 kg

DRUGS (2)
  1. BACLOFEN [Suspect]
     Indication: ENCEPHALITIS
  2. BACLOFEN [Suspect]
     Indication: DYSTONIA

REACTIONS (6)
  - HYDROCEPHALUS [None]
  - CEREBROSPINAL FLUID RETENTION [None]
  - MEDICAL DEVICE COMPLICATION [None]
  - MEDICAL DEVICE SITE REACTION [None]
  - IMPLANT SITE EFFUSION [None]
  - INTRACRANIAL HYPOTENSION [None]
